FAERS Safety Report 21434377 (Version 1)
Quarter: 2022Q4

REPORT INFORMATION
  Report Type: Spontaneous
  Country: DE (occurrence: DE)
  Receive Date: 20221010
  Receipt Date: 20221010
  Transmission Date: 20230113
  Serious: No
  Sender: FDA-Public Use
  Company Number: None

PATIENT
  Age: 55 Year
  Sex: Female
  Weight: 53 kg

DRUGS (3)
  1. IBUPROFEN [Suspect]
     Active Substance: IBUPROFEN
     Indication: Cystitis
     Dosage: 3 DOSAGE FORM, QD (FILM-COATED TABLET)
     Route: 048
     Dates: start: 20220808, end: 20220810
  2. Acimol [Concomitant]
     Indication: Cystitis
     Dosage: UNK (FILM-COATED TABLET)
     Route: 065
  3. D-MANNOSE [Concomitant]
     Indication: Cystitis
     Dosage: UNK (OTHER/UNSPECIFIED)
     Route: 065

REACTIONS (5)
  - Abdominal pain upper [Recovered/Resolved]
  - Throat irritation [Recovered/Resolved]
  - Somnolence [Recovered/Resolved]
  - Dry mouth [Recovered/Resolved]
  - Fatigue [Recovered/Resolved]

NARRATIVE: CASE EVENT DATE: 20220812
